FAERS Safety Report 6559669-8 (Version None)
Quarter: 2010Q1

REPORT INFORMATION
  Report Type: 
  Country: None (occurrence: None)
  Receive Date: 20100129
  Receipt Date: 20090904
  Transmission Date: 20100710
  Serious: No
  Sender: FDA-Public Use
  Company Number: US-ABBOTT-09P-163-0596150-00

PATIENT
  Sex: Female
  Weight: 44.038 kg

DRUGS (9)
  1. HUMIRA [Suspect]
     Indication: RHEUMATOID ARTHRITIS
     Route: 058
     Dates: start: 20090624, end: 20090901
  2. CYMBALTA [Concomitant]
     Indication: DEPRESSION
     Route: 048
  3. CYMBALTA [Concomitant]
     Indication: PAIN
  4. FOLIC ACID [Concomitant]
     Indication: MEDICAL DIET
     Route: 048
  5. VITAMIN B-12 [Concomitant]
     Indication: MEDICAL DIET
     Route: 048
  6. LUNESTA [Concomitant]
     Indication: INSOMNIA
     Route: 048
  7. FISH OIL SOFT GELS [Concomitant]
     Indication: MEDICAL DIET
     Dosage: UNKNOWN
     Route: 048
  8. LOVAZA [Concomitant]
     Indication: MEDICAL DIET
     Dosage: UNKNOWN
     Route: 048
  9. GLUCOSAMINE [Concomitant]
     Indication: MEDICAL DIET
     Route: 048

REACTIONS (1)
  - DRUG INEFFECTIVE [None]
